FAERS Safety Report 25444667 (Version 1)
Quarter: 2025Q2

REPORT INFORMATION
  Report Type: Spontaneous
  Country: GR (occurrence: GR)
  Receive Date: 20250617
  Receipt Date: 20250617
  Transmission Date: 20250717
  Serious: Yes (Death, Other)
  Sender: CHEPLAPHARM
  Company Number: GR-TEVA-VS-3181489

PATIENT
  Age: 59 Year
  Sex: Male

DRUGS (3)
  1. GANCICLOVIR [Suspect]
     Active Substance: GANCICLOVIR
     Indication: Pneumocystis jirovecii pneumonia
  2. DOXORUBICIN [Suspect]
     Active Substance: DOXORUBICIN
     Indication: Kaposi^s sarcoma
  3. VALGANCICLOVIR [Suspect]
     Active Substance: VALGANCICLOVIR
     Indication: Pneumocystis jirovecii pneumonia
     Route: 048

REACTIONS (6)
  - Pancytopenia [Fatal]
  - Toxicity to various agents [Unknown]
  - Retinopathy [Unknown]
  - Traumatic lung injury [Unknown]
  - Drug resistance mutation [Unknown]
  - Off label use [Unknown]
